FAERS Safety Report 5567492-6 (Version None)
Quarter: 2007Q4

REPORT INFORMATION
  Report Type: 
  Country: None (occurrence: None)
  Receive Date: 20071219
  Receipt Date: 20071212
  Transmission Date: 20080405
  Serious: Yes (Life-Threatening, Hospitalization, Other)
  Sender: FDA-Public Use
  Company Number: GB-MERCK-0712GBR00048

PATIENT
  Age: 24 Year
  Sex: Male

DRUGS (12)
  1. ZOCOR [Suspect]
     Route: 048
     Dates: start: 20040416
  2. NIFEDIPINE [Suspect]
     Route: 048
     Dates: start: 20020801
  3. SIROLIMUS [Suspect]
     Route: 048
     Dates: start: 20030818
  4. AZITHROMYCIN [Concomitant]
     Route: 048
     Dates: start: 20040416
  5. SULFAMETHOXAZOLE AND TRIMETHOPRIM [Concomitant]
     Route: 048
     Dates: start: 20020801
  6. FERROUS GLUCONATE [Concomitant]
     Route: 048
     Dates: start: 20070723
  7. FUROSEMIDE [Concomitant]
     Route: 048
     Dates: start: 20050712
  8. INSULIN GLARGINE [Concomitant]
     Route: 058
     Dates: start: 20050913
  9. INSULIN ASPART [Concomitant]
     Route: 058
     Dates: start: 20050913
  10. OMEPRAZOLE [Concomitant]
     Route: 048
     Dates: start: 20061215
  11. PREDNISOLONE [Concomitant]
     Route: 048
     Dates: start: 20020801
  12. TACROLIMUS [Concomitant]
     Route: 065
     Dates: start: 20020813

REACTIONS (1)
  - NEPHROTIC SYNDROME [None]
